FAERS Safety Report 5507629-8 (Version None)
Quarter: 2007Q4

REPORT INFORMATION
  Report Type: 
  Country: None (occurrence: None)
  Receive Date: 20071105
  Receipt Date: 20071105
  Transmission Date: 20080405
  Serious: No
  Sender: FDA-Public Use
  Company Number: None

PATIENT

DRUGS (1)
  1. DEEP SEA NASAL SPRAY     PROPHARMA INC. [Suspect]
     Indication: CHEMOTHERAPY

REACTIONS (1)
  - BURNING SENSATION [None]
